FAERS Safety Report 8241274-9 (Version None)
Quarter: 2012Q1

REPORT INFORMATION
  Report Type: 
  Country: None (occurrence: None)
  Receive Date: 20120328
  Receipt Date: 20120316
  Transmission Date: 20120608
  Serious: Yes (Other)
  Sender: FDA-Public Use
  Company Number: US-JNJFOC-20120308488

PATIENT
  Sex: Female
  Weight: 79.38 kg

DRUGS (3)
  1. CHEMOTHERAPY [Suspect]
     Indication: NEOPLASM MALIGNANT
     Route: 042
     Dates: start: 20110601, end: 20111003
  2. REMICADE [Suspect]
     Route: 042
     Dates: start: 20100101, end: 20110201
  3. REMICADE [Suspect]
     Indication: RHEUMATOID ARTHRITIS
     Route: 042
     Dates: start: 20120312

REACTIONS (13)
  - WEIGHT DECREASED [None]
  - MEMORY IMPAIRMENT [None]
  - ABDOMINAL PAIN [None]
  - MUSCULOSKELETAL STIFFNESS [None]
  - DYSURIA [None]
  - NEUROPATHY PERIPHERAL [None]
  - WEIGHT INCREASED [None]
  - DIARRHOEA [None]
  - PAIN [None]
  - NEOPLASM MALIGNANT [None]
  - INFUSION RELATED REACTION [None]
  - DRUG INEFFECTIVE [None]
  - ABDOMINAL DISTENSION [None]
